FAERS Safety Report 5567872-9 (Version None)
Quarter: 2007Q4

REPORT INFORMATION
  Report Type: 
  Country: None (occurrence: None)
  Receive Date: 20071220
  Receipt Date: 20071206
  Transmission Date: 20080405
  Serious: Yes (Hospitalization)
  Sender: FDA-Public Use
  Company Number: JP-ELI_LILLY_AND_COMPANY-JP200712003149

PATIENT
  Sex: Female

DRUGS (3)
  1. ZYPREXA [Suspect]
     Dosage: 10 MG, UNK
     Route: 048
  2. ZYPREXA [Suspect]
     Dosage: 5 MG, UNK
     Route: 048
  3. ZYPREXA [Suspect]
     Dosage: 10 MG, UNK
     Route: 048

REACTIONS (7)
  - BRADYKINESIA [None]
  - FALL [None]
  - HOSPITALISATION [None]
  - MALAISE [None]
  - PARKINSONISM [None]
  - RESTLESS LEGS SYNDROME [None]
  - SLEEP DISORDER [None]
